FAERS Safety Report 9572455 (Version 1)
Quarter: 2013Q4

REPORT INFORMATION
  Report Type: Spontaneous
  Country: CA (occurrence: CA)
  Receive Date: 20131001
  Receipt Date: 20131001
  Transmission Date: 20140711
  Serious: Yes (Other)
  Sender: FDA-Public Use
  Company Number: CA-GILEAD-2013-0084581

PATIENT
  Sex: Female

DRUGS (1)
  1. TRUVADA [Suspect]
     Indication: PRODUCT USED FOR UNKNOWN INDICATION

REACTIONS (3)
  - Osteomalacia [Unknown]
  - Blood alkaline phosphatase increased [Unknown]
  - Fracture [Unknown]
